FAERS Safety Report 14310526 (Version 1)
Quarter: 2017Q4

REPORT INFORMATION
  Report Type: Other
  Country: IT (occurrence: IT)
  Receive Date: 20171220
  Receipt Date: 20171220
  Transmission Date: 20180321
  Serious: Yes (Hospitalization)
  Sender: FDA-Public Use
  Company Number: IT-TAKEDA-2017TUS025891

PATIENT
  Sex: Male

DRUGS (4)
  1. TICHE [Concomitant]
     Dosage: UNK
  2. MESAVANCOL [Concomitant]
     Active Substance: MESALAMINE
     Dosage: 1200 MG, UNK
  3. ENTYVIO [Suspect]
     Active Substance: VEDOLIZUMAB
     Indication: CROHN^S DISEASE
     Dosage: 300 MG, UNK
     Route: 065
  4. TRIATEC HCT [Concomitant]
     Active Substance: HYDROCHLOROTHIAZIDE\RAMIPRIL
     Dosage: 5 MG/ 25 MG

REACTIONS (6)
  - Back pain [Recovered/Resolved with Sequelae]
  - Pyrexia [Recovered/Resolved with Sequelae]
  - Myalgia [Recovered/Resolved with Sequelae]
  - Arthritis [Recovered/Resolved with Sequelae]
  - Cervicobrachial syndrome [Recovered/Resolved with Sequelae]
  - Clonus [Recovered/Resolved with Sequelae]

NARRATIVE: CASE EVENT DATE: 20161208
